FAERS Safety Report 8529376-0 (Version None)
Quarter: 2012Q2

REPORT INFORMATION
  Report Type: 
  Country: None (occurrence: None)
  Receive Date: 20120409
  Receipt Date: 20111207
  Transmission Date: 20120825
  Serious: Yes (Hospitalization)
  Sender: FDA-Public Use
  Company Number: 2011-539

PATIENT
  Age: 18 Year
  Sex: Female

DRUGS (3)
  1. PANTOPRAZOLE [Concomitant]
  2. FAZACLO ODT [Suspect]
     Dosage: 200 MG, QD, ORAL
     Route: 048
     Dates: start: 20111123, end: 20111206
  3. NICOTINE [Concomitant]

REACTIONS (2)
  - TACHYCARDIA [None]
  - BUNDLE BRANCH BLOCK RIGHT [None]
